FAERS Safety Report 9463764 (Version 2)
Quarter: 2013Q4

REPORT INFORMATION
  Report Type: Spontaneous
  Country: IT (occurrence: IT)
  Receive Date: 20130819
  Receipt Date: 20131004
  Transmission Date: 20140711
  Serious: Yes (Hospitalization)
  Sender: FDA-Public Use
  Company Number: IT-RANBAXY-2013R1-72291

PATIENT
  Age: 50 Year
  Sex: Male

DRUGS (1)
  1. PARACETAMOL [Suspect]
     Indication: HEADACHE
     Dosage: 3 GM, DAILY
     Route: 048

REACTIONS (1)
  - Liver disorder [Recovering/Resolving]
